FAERS Safety Report 11478666 (Version 6)
Quarter: 2016Q4

REPORT INFORMATION
  Report Type: Spontaneous
  Country: US (occurrence: US)
  Receive Date: 20150909
  Receipt Date: 20161212
  Transmission Date: 20170206
  Serious: Yes (Hospitalization, Other)
  Sender: FDA-Public Use
  Company Number: US-PFIZER INC-2015295915

PATIENT
  Age: 55 Year
  Sex: Female
  Weight: 94 kg

DRUGS (1)
  1. TORISEL [Suspect]
     Active Substance: TEMSIROLIMUS
     Dosage: UNK, WEEKLY

REACTIONS (5)
  - Brain neoplasm [Unknown]
  - Nausea [Unknown]
  - Herpes zoster [Unknown]
  - Tumour associated fever [Unknown]
  - Neoplasm progression [Unknown]
